FAERS Safety Report 4575341-8 (Version None)
Quarter: 2005Q1

REPORT INFORMATION
  Report Type: 
  Country: None (occurrence: None)
  Receive Date: 20050127
  Receipt Date: 20050127
  Transmission Date: 20050727
  Serious: Yes (Hospitalization)
  Sender: FDA-Public Use
  Company Number: None

PATIENT
  Age: 48 Year
  Sex: Female
  Weight: 93.441 kg

DRUGS (1)
  1. RITUXAN [Suspect]
     Indication: NON-HODGKIN'S LYMPHOMA
     Dosage: WEEKLY, IV
     Route: 042
     Dates: start: 20040701

REACTIONS (4)
  - NAUSEA [None]
  - POST PROCEDURAL COMPLICATION [None]
  - PYREXIA [None]
  - VOMITING [None]
